FAERS Safety Report 7148304-6 (Version None)
Quarter: 2010Q4

REPORT INFORMATION
  Report Type: 
  Country: None (occurrence: None)
  Receive Date: 20101209
  Receipt Date: 20101129
  Transmission Date: 20110411
  Serious: Yes (Hospitalization)
  Sender: FDA-Public Use
  Company Number: ES-ELI_LILLY_AND_COMPANY-ES201011007222

PATIENT
  Sex: Female
  Weight: 68 kg

DRUGS (6)
  1. FORTEO [Suspect]
     Indication: OSTEOPOROSIS
     Dosage: 20 UG, DAILY (1/D)
     Route: 058
     Dates: start: 20100217
  2. SINTROM [Concomitant]
     Indication: ARRHYTHMIA
     Dosage: UNK, UNKNOWN
     Route: 048
  3. SINVASTATINA [Concomitant]
     Indication: HYPERCHOLESTEROLAEMIA
     Dosage: UNK, UNKNOWN
     Route: 048
  4. ALDOCUMAR [Concomitant]
     Dosage: 1 MG, 1.5/DAILY (1/D)
     Route: 048
  5. TRANGOREX [Concomitant]
     Indication: ARRHYTHMIA
     Dosage: 200 MG, DAILY (1/D)
     Route: 048
  6. ZYLORIC [Concomitant]
     Indication: HYPERURICAEMIA
     Dosage: 100 MG, DAILY (1/D)
     Route: 048

REACTIONS (6)
  - DRUG DOSE OMISSION [None]
  - DRUG INTERACTION [None]
  - HYPERURICAEMIA [None]
  - INJECTION SITE HAEMATOMA [None]
  - MEDICATION ERROR [None]
  - METRORRHAGIA [None]
